FAERS Safety Report 5079995-1 (Version None)
Quarter: 2006Q3

REPORT INFORMATION
  Report Type: 
  Country: None (occurrence: None)
  Receive Date: 20060810
  Receipt Date: 20060726
  Transmission Date: 20061208
  Serious: Yes (Other)
  Sender: FDA-Public Use
  Company Number: SPV1-2006-00284

PATIENT

DRUGS (1)
  1. ANAGRELIDE HCL [Suspect]

REACTIONS (4)
  - ARRHYTHMIA [None]
  - BLOOD CREATININE INCREASED [None]
  - HAEMOGLOBIN DECREASED [None]
  - SPLENIC HAEMATOMA [None]
